FAERS Safety Report 17047995 (Version 1)
Quarter: 2019Q4

REPORT INFORMATION
  Report Type: Spontaneous
  Country: US (occurrence: US)
  Receive Date: 20191119
  Receipt Date: 20191119
  Transmission Date: 20200122
  Serious: No
  Sender: FDA-Public Use
  Company Number: US-AMAG PHARMACEUTICALS, INC.-AMAG201905878

PATIENT
  Sex: Female
  Weight: 56.3 kg

DRUGS (4)
  1. SSRI [Concomitant]
     Active Substance: UNSPECIFIED INGREDIENT
     Indication: PRODUCT USED FOR UNKNOWN INDICATION
     Route: 048
  2. ^SSRI^ [Concomitant]
     Route: 048
  3. INTRAROSA [Suspect]
     Active Substance: PRASTERONE
     Indication: ANAL INCONTINENCE
     Dosage: EXPIRES:  XXNOV2021
     Route: 067
     Dates: start: 20191009
  4. ^SUPPLEMENTS^ [Concomitant]

REACTIONS (3)
  - Off label use [Not Recovered/Not Resolved]
  - Blood alkaline phosphatase decreased [Not Recovered/Not Resolved]
  - Product administration error [Unknown]

NARRATIVE: CASE EVENT DATE: 20191009
